FAERS Safety Report 24327005 (Version 1)
Quarter: 2024Q3

REPORT INFORMATION
  Report Type: Report from Study
  Country: US (occurrence: US)
  Receive Date: 20240917
  Receipt Date: 20240917
  Transmission Date: 20241016
  Serious: Yes (Other)
  Sender: IPSEN
  Company Number: US-IPSEN Group, Research and Development-2024-18171

PATIENT
  Age: 20 Month
  Sex: Male
  Weight: 7.93 kg

DRUGS (1)
  1. BYLVAY [Suspect]
     Active Substance: ODEVIXIBAT
     Indication: Alagille syndrome
     Dosage: 200 MCG ORAL PELLETS
     Route: 048
     Dates: start: 20240215, end: 20240430

REACTIONS (2)
  - Hypovitaminosis [Recovered/Resolved with Sequelae]
  - Drug intolerance [Unknown]

NARRATIVE: CASE EVENT DATE: 20240222
